FAERS Safety Report 20154597 (Version 2)
Quarter: 2021Q4

REPORT INFORMATION
  Report Type: Spontaneous
  Country: NL (occurrence: NL)
  Receive Date: 20211207
  Receipt Date: 20211210
  Transmission Date: 20220303
  Serious: Yes (Life-Threatening, Other)
  Sender: FDA-Public Use
  Company Number: NL-VALIDUS PHARMACEUTICALS LLC-NL-VDP-2021-014659

PATIENT

DRUGS (7)
  1. FUROSEMIDE [Suspect]
     Active Substance: FUROSEMIDE
     Indication: Product used for unknown indication
     Dosage: 40 MG, QD
     Route: 065
  2. OMEPRAZOLE [Suspect]
     Active Substance: OMEPRAZOLE
     Indication: Product used for unknown indication
     Dosage: 40 MG, QD
     Route: 065
  3. OMEPRAZOLE [Suspect]
     Active Substance: OMEPRAZOLE
     Dosage: 1 DF, QD (DURATION 16.5 YEARS)
     Route: 065
  4. NEBIVOLOL [Suspect]
     Active Substance: NEBIVOLOL
     Indication: Cardiac failure
     Dosage: 1 DF, QD
     Route: 065
  5. LISINOPRIL [Suspect]
     Active Substance: LISINOPRIL
     Indication: Cardiac failure
     Dosage: UNK
     Route: 065
  6. ACENOCOUMAROL [Suspect]
     Active Substance: ACENOCOUMAROL
     Indication: Product used for unknown indication
     Dosage: 1 MG
     Route: 065
  7. AMIODARONE [Concomitant]
     Active Substance: AMIODARONE
     Indication: Product used for unknown indication
     Dosage: 200 MG, QD
     Route: 065

REACTIONS (2)
  - Renal failure [Recovering/Resolving]
  - Nephropathy toxic [Recovering/Resolving]
